FAERS Safety Report 11999990 (Version 1)
Quarter: 2016Q1

REPORT INFORMATION
  Report Type: Spontaneous
  Country: FR (occurrence: FR)
  Receive Date: 20160204
  Receipt Date: 20160204
  Transmission Date: 20160526
  Serious: Yes (Other)
  Sender: FDA-Public Use
  Company Number: FR-NOVOPROD-477122

PATIENT
  Age: 60 Year
  Sex: Male
  Weight: 93 kg

DRUGS (5)
  1. LEVEMIR [Suspect]
     Active Substance: INSULIN DETEMIR
     Indication: TYPE 2 DIABETES MELLITUS
     Dosage: UNK
     Route: 058
     Dates: start: 201601
  2. GLICLAZIDE [Concomitant]
     Active Substance: GLICLAZIDE
     Dosage: 120 MG, QD
     Route: 065
     Dates: start: 201501
  3. METFORMINE [Concomitant]
     Active Substance: METFORMIN HYDROCHLORIDE
     Dosage: 03 DF, QD (1000)
     Route: 065
     Dates: start: 201501
  4. XELEVIA [Concomitant]
     Active Substance: SITAGLIPTIN PHOSPHATE
     Dosage: 1 DF, QD
     Route: 065
  5. VICTOZA [Suspect]
     Active Substance: LIRAGLUTIDE
     Indication: TYPE 2 DIABETES MELLITUS
     Dosage: UNK
     Route: 058
     Dates: start: 201601

REACTIONS (4)
  - Product odour abnormal [Unknown]
  - Dizziness [Unknown]
  - Gastrooesophageal reflux disease [Unknown]
  - Dysgeusia [Unknown]

NARRATIVE: CASE EVENT DATE: 201601
